FAERS Safety Report 23598127 (Version 1)
Quarter: 2024Q1

REPORT INFORMATION
  Report Type: Spontaneous
  Country: US (occurrence: US)
  Receive Date: 20240305
  Receipt Date: 20240305
  Transmission Date: 20240410
  Serious: No
  Sender: FDA-Public Use
  Company Number: US-BIOMARINAP-US-2024-156153

PATIENT

DRUGS (1)
  1. PALYNZIQ [Suspect]
     Active Substance: PEGVALIASE-PQPZ
     Indication: Product used for unknown indication
     Route: 058

REACTIONS (5)
  - Rhinorrhoea [Unknown]
  - Toothache [Unknown]
  - Oropharyngeal pain [Unknown]
  - Fatigue [Unknown]
  - Injection site erythema [Unknown]
